FAERS Safety Report 6844771-3 (Version None)
Quarter: 2010Q3

REPORT INFORMATION
  Report Type: 
  Country: None (occurrence: None)
  Receive Date: 20100715
  Receipt Date: 20100706
  Transmission Date: 20110219
  Serious: Yes (Other)
  Sender: FDA-Public Use
  Company Number: GXKR2010CH06403

PATIENT
  Age: 30 Year
  Sex: Male

DRUGS (3)
  1. CETALLERG (NGX) [Suspect]
     Indication: ALLERGY TO ARTHROPOD STING
     Dosage: 10 MG/DAY
     Route: 048
     Dates: end: 20080101
  2. CETALLERG (NGX) [Suspect]
     Indication: SEASONAL ALLERGY
  3. INTERFERON [Concomitant]

REACTIONS (1)
  - MULTIPLE SCLEROSIS [None]
